FAERS Safety Report 24454774 (Version 2)
Quarter: 2024Q4

REPORT INFORMATION
  Report Type: Report from Study
  Country: US (occurrence: US)
  Receive Date: 20241017
  Receipt Date: 20241018
  Transmission Date: 20250114
  Serious: No
  Sender: ROCHE
  Company Number: US-ROCHE-3467162

PATIENT
  Sex: Male

DRUGS (2)
  1. RITUXIMAB [Suspect]
     Active Substance: RITUXIMAB
     Indication: Pemphigoid
     Dosage: ON DAYS 0 AND 15
     Route: 042
  2. OMALIZUMAB [Concomitant]
     Active Substance: OMALIZUMAB
     Indication: Pemphigoid
     Dosage: HIGH DOSE (HD), 300MG EVERY 2WEEKS; OR ALTERNATIVE LOW DOSE (LD), 300MG EVERY 4 WEEKS OR 150MG EVERY
     Route: 058

REACTIONS (2)
  - Off label use [Unknown]
  - No adverse event [Unknown]
